FAERS Safety Report 6481603-X (Version None)
Quarter: 2009Q4

REPORT INFORMATION
  Report Type: 
  Country: None (occurrence: None)
  Receive Date: 20091208
  Receipt Date: 20091202
  Transmission Date: 20100525
  Serious: Yes (Hospitalization)
  Sender: FDA-Public Use
  Company Number: HK-ROCHE-669800

PATIENT
  Sex: Male
  Weight: 51.7 kg

DRUGS (3)
  1. BEVACIZUMAB [Suspect]
     Indication: NON-SMALL CELL LUNG CANCER
     Dosage: FORM: IV INFUSION
     Route: 042
     Dates: start: 20090806, end: 20091112
  2. GEMCITABINE [Suspect]
     Indication: NON-SMALL CELL LUNG CANCER
     Dosage: FORM: IV INFUSION
     Route: 042
     Dates: start: 20090806, end: 20091112
  3. CARBOPLATIN [Suspect]
     Dosage: FORM: IV INFUSION
     Route: 042
     Dates: start: 20090806, end: 20091112

REACTIONS (1)
  - PALPITATIONS [None]
